FAERS Safety Report 7474872-0 (Version None)
Quarter: 2011Q2

REPORT INFORMATION
  Report Type: 
  Country: None (occurrence: None)
  Receive Date: 20110512
  Receipt Date: 20110504
  Transmission Date: 20111010
  Serious: Yes (Death, Disabling)
  Sender: FDA-Public Use
  Company Number: US-CELGENEUS-163-21880-11030515

PATIENT
  Sex: Female

DRUGS (2)
  1. REVLIMID [Suspect]
     Indication: MULTIPLE MYELOMA
     Dosage: 25 MILLIGRAM
     Route: 048
     Dates: start: 20100106, end: 20100101
  2. REVLIMID [Suspect]
     Dosage: 15 MILLIGRAM
     Route: 048
     Dates: start: 20101201, end: 20110303

REACTIONS (3)
  - NO THERAPEUTIC RESPONSE [None]
  - ANAEMIA [None]
  - DEATH [None]
